FAERS Safety Report 25776454 (Version 1)
Quarter: 2025Q3

REPORT INFORMATION
  Report Type: Spontaneous
  Country: US (occurrence: US)
  Receive Date: 20250909
  Receipt Date: 20250909
  Transmission Date: 20251020
  Serious: No
  Sender: DOMPE FARMACEUTICI
  Company Number: US-FARMAPROD-202503-0686

PATIENT
  Sex: Male

DRUGS (11)
  1. OXERVATE [Suspect]
     Active Substance: CENEGERMIN-BKBJ
     Indication: Neurotrophic keratopathy
     Route: 047
     Dates: start: 20250203
  2. LISINOPRIL [Concomitant]
     Active Substance: LISINOPRIL
  3. GLIPIZIDE [Concomitant]
     Active Substance: GLIPIZIDE
  4. ATENOLOL [Concomitant]
     Active Substance: ATENOLOL
  5. GLIPIZIDE [Concomitant]
     Active Substance: GLIPIZIDE
  6. XIIDRA [Concomitant]
     Active Substance: LIFITEGRAST
  7. METFORMIN HYDROCHLORIDE [Concomitant]
     Active Substance: METFORMIN HYDROCHLORIDE
  8. IRBESARTAN [Concomitant]
     Active Substance: IRBESARTAN
  9. SIMVASTATIN [Concomitant]
     Active Substance: SIMVASTATIN
  10. METFORMIN HYDROCHLORIDE [Concomitant]
     Active Substance: METFORMIN HYDROCHLORIDE
  11. ATENOLOL [Concomitant]
     Active Substance: ATENOLOL

REACTIONS (1)
  - Eye pain [Unknown]
